FAERS Safety Report 23621373 (Version 10)
Quarter: 2025Q4

REPORT INFORMATION
  Report Type: Report from Study
  Country: CO (occurrence: CO)
  Receive Date: 20240312
  Receipt Date: 20251013
  Transmission Date: 20260117
  Serious: Yes (Death, Hospitalization, Other)
  Sender: TAKEDA
  Company Number: CO-TAKEDA-2024TUS022219

PATIENT
  Age: 6 Year
  Sex: Male
  Weight: 19 kg

DRUGS (4)
  1. HUMAN IMMUNOGLOBULIN G\HYALURONIDASE RECOMBINANT HUMAN [Suspect]
     Active Substance: HUMAN IMMUNOGLOBULIN G\HYALURONIDASE (HUMAN RECOMBINANT)
     Indication: Primary immunodeficiency syndrome
     Dosage: 10 GRAM, MONTHLY
  2. HUMAN IMMUNOGLOBULIN G\HYALURONIDASE RECOMBINANT HUMAN [Suspect]
     Active Substance: HUMAN IMMUNOGLOBULIN G\HYALURONIDASE (HUMAN RECOMBINANT)
     Dosage: 10 GRAM, Q4WEEKS
  3. HUMAN IMMUNOGLOBULIN G\HYALURONIDASE RECOMBINANT HUMAN [Suspect]
     Active Substance: HUMAN IMMUNOGLOBULIN G\HYALURONIDASE (HUMAN RECOMBINANT)
     Dosage: 10 GRAM, MONTHLY
     Dates: start: 20140301
  4. HUMAN IMMUNOGLOBULIN G\HYALURONIDASE RECOMBINANT HUMAN [Suspect]
     Active Substance: HUMAN IMMUNOGLOBULIN G\HYALURONIDASE (HUMAN RECOMBINANT)
     Dosage: 10 GRAM, MONTHLY
     Dates: start: 20240301

REACTIONS (20)
  - Death [Fatal]
  - COVID-19 [Unknown]
  - Hypogammaglobulinaemia [Unknown]
  - Acute lymphocytic leukaemia [Unknown]
  - Dehydration [Recovering/Resolving]
  - Pain [Recovering/Resolving]
  - Peripheral swelling [Recovering/Resolving]
  - Diarrhoea [Recovering/Resolving]
  - Vomiting [Recovering/Resolving]
  - Body height increased [Unknown]
  - Product dose omission issue [Unknown]
  - Weight increased [Unknown]
  - Eye pain [Unknown]
  - Dizziness [Unknown]
  - Headache [Unknown]
  - Treatment noncompliance [Unknown]
  - Weight decreased [Unknown]
  - Product prescribing issue [Unknown]
  - Product use issue [Unknown]
  - Insurance issue [Unknown]

NARRATIVE: CASE EVENT DATE: 20240228
